FAERS Safety Report 18470590 (Version 1)
Quarter: 2020Q4

REPORT INFORMATION
  Report Type: Spontaneous
  Country: US (occurrence: US)
  Receive Date: 20201105
  Receipt Date: 20201105
  Transmission Date: 20210114
  Serious: Yes (Other)
  Sender: FDA-Public Use
  Company Number: US-PURDUE-USA-2020-0157391

PATIENT

DRUGS (1)
  1. OXYCONTIN [Suspect]
     Active Substance: OXYCODONE HYDROCHLORIDE
     Indication: PAIN
     Dosage: UNK
     Route: 048
     Dates: start: 2007

REACTIONS (8)
  - Feeling abnormal [Unknown]
  - Euphoric mood [Unknown]
  - Drug dependence [Recovered/Resolved]
  - Therapeutic response unexpected [Unknown]
  - Impaired work ability [Unknown]
  - Drug abuse [Recovered/Resolved]
  - Drug withdrawal syndrome [Unknown]
  - Self esteem decreased [Unknown]

NARRATIVE: CASE EVENT DATE: 200705
